FAERS Safety Report 7282504-X (Version None)
Quarter: 2011Q1

REPORT INFORMATION
  Report Type: 
  Country: None (occurrence: None)
  Receive Date: 20110127
  Receipt Date: 20110113
  Transmission Date: 20110831
  Serious: No
  Sender: FDA-Public Use
  Company Number: 2011-00015

PATIENT
  Sex: Female

DRUGS (2)
  1. ZICAM COLD REMEDY ORAL MIST [Suspect]
     Dates: start: 20110110
  2. ZICAM COLD REMEDY PLUS LIQUI-LOZ [Suspect]
     Dates: start: 20110110

REACTIONS (1)
  - AGEUSIA [None]
